FAERS Safety Report 6595629-9 (Version None)
Quarter: 2010Q1

REPORT INFORMATION
  Report Type: 
  Country: None (occurrence: None)
  Receive Date: 20100223
  Receipt Date: 20100105
  Transmission Date: 20100710
  Serious: Yes (Death)
  Sender: FDA-Public Use
  Company Number: US-TYCO HEALTHCARE/MALLINCKRODT-T201000390

PATIENT
  Age: 53 Year
  Sex: Female

DRUGS (5)
  1. ACETAMINOPHEN AND HYDROCODONE BITARTRATE [Suspect]
     Route: 048
  2. METHADOSE [Suspect]
     Route: 048
  3. POTASSIUM CHLORIDE [Suspect]
     Route: 048
  4. BUTALBITAL/CAFFEINE/SALICYLATE [Suspect]
     Route: 048
  5. FUROSEMIDE [Suspect]
     Route: 048

REACTIONS (1)
  - CARDIO-RESPIRATORY ARREST [None]
